FAERS Safety Report 6346441-7 (Version None)
Quarter: 2009Q3

REPORT INFORMATION
  Report Type: 
  Country: None (occurrence: None)
  Receive Date: 20090909
  Receipt Date: 20090902
  Transmission Date: 20100115
  Serious: Yes (Hospitalization, Other)
  Sender: FDA-Public Use
  Company Number: US-PURDUE-USA-2009-0039556

PATIENT
  Sex: Female

DRUGS (8)
  1. OXYCONTIN [Suspect]
     Indication: PAIN
     Dosage: 80 MG, BID
     Dates: start: 20070101, end: 20090809
  2. SOMA [Concomitant]
     Indication: PAIN
     Dosage: 300 MG, DAILY
     Dates: start: 20060701
  3. XANAX [Concomitant]
     Indication: ANXIETY
     Dosage: 0.5 MG, TID
     Dates: start: 20060501
  4. VERAPAMIL [Concomitant]
     Indication: HYPERTENSION
     Dosage: 180 MG, DAILY
  5. CLONIDINE [Concomitant]
     Indication: NERVOUSNESS
     Dosage: 0.1 MG, BID
  6. LEXAPRO [Concomitant]
     Indication: DEPRESSION
     Dosage: 10 MG, DAILY
  7. LUNESTA [Concomitant]
     Indication: INSOMNIA
     Dosage: 3 MG, NOCTE
  8. NAPROSYN [Concomitant]
     Indication: ARTHRALGIA
     Dosage: 500 MG, BID

REACTIONS (2)
  - INTENTIONAL OVERDOSE [None]
  - SUICIDE ATTEMPT [None]
